FAERS Safety Report 12679049 (Version 1)
Quarter: 2016Q3

REPORT INFORMATION
  Report Type: Spontaneous
  Country: US (occurrence: US)
  Receive Date: 20160824
  Receipt Date: 20160824
  Transmission Date: 20161109
  Serious: No
  Sender: FDA-Public Use
  Company Number: US-LUPIN PHARMACEUTICALS INC.-E2B_00005421

PATIENT
  Sex: Female
  Weight: 63.56 kg

DRUGS (1)
  1. CELECOXIB CAPSULES 200 MG [Suspect]
     Active Substance: CELECOXIB
     Indication: ARTHRITIS
     Route: 048

REACTIONS (4)
  - Product size issue [Unknown]
  - Product physical issue [Unknown]
  - No adverse event [Unknown]
  - Product difficult to swallow [Unknown]
